FAERS Safety Report 7057836-0 (Version None)
Quarter: 2010Q4

REPORT INFORMATION
  Report Type: 
  Country: None (occurrence: None)
  Receive Date: 20101022
  Receipt Date: 20101018
  Transmission Date: 20110411
  Serious: Yes (Death)
  Sender: FDA-Public Use
  Company Number: PL-PFIZER INC-2010131721

PATIENT
  Age: 41 Year

DRUGS (8)
  1. DIFLUCAN [Suspect]
  2. VFEND [Suspect]
  3. ZYVOX [Suspect]
  4. METRONIDAZOLE [Suspect]
  5. TYGACIL [Suspect]
  6. TAZOCIN [Suspect]
  7. MEROPENEM [Suspect]
  8. BISEPTOL [Suspect]

REACTIONS (1)
  - CONDITION AGGRAVATED [None]
